FAERS Safety Report 23408334 (Version 2)
Quarter: 2024Q2

REPORT INFORMATION
  Report Type: Report from Study
  Country: US (occurrence: US)
  Receive Date: 20240117
  Receipt Date: 20240517
  Transmission Date: 20240716
  Serious: Yes (Other)
  Sender: FDA-Public Use
  Company Number: US-China IPSEN SC-2024-00694

PATIENT
  Age: 39 Year
  Sex: Female

DRUGS (1)
  1. SOMATULINE DEPOT [Suspect]
     Active Substance: LANREOTIDE ACETATE
     Indication: Carcinoid tumour of the small bowel
     Route: 058
     Dates: start: 2017

REACTIONS (4)
  - Cholecystectomy [Not Recovered/Not Resolved]
  - Breast cancer [Unknown]
  - Neuroendocrine tumour [Not Recovered/Not Resolved]
  - Hepatic lesion [Recovered/Resolved]

NARRATIVE: CASE EVENT DATE: 20170101
